FAERS Safety Report 13238021 (Version 1)
Quarter: 2017Q1

REPORT INFORMATION
  Report Type: Spontaneous
  Country: CA (occurrence: CA)
  Receive Date: 20170216
  Receipt Date: 20170216
  Transmission Date: 20170428
  Serious: Yes (Disabling)
  Sender: FDA-Public Use
  Company Number: CA-TEVA-739268ACC

PATIENT
  Age: 32 Year
  Sex: Female

DRUGS (3)
  1. ABILIFY MAINTENA [Concomitant]
     Active Substance: ARIPIPRAZOLE
  2. SEROQUEL XR [Concomitant]
     Active Substance: QUETIAPINE FUMARATE
  3. OLANZAPINE ODT [Suspect]
     Active Substance: OLANZAPINE
     Indication: SCHIZOPHRENIA
     Dosage: 20 MILLIGRAM DAILY;
     Route: 048

REACTIONS (3)
  - Therapeutic response decreased [Recovering/Resolving]
  - Product quality issue [Recovering/Resolving]
  - Condition aggravated [Recovering/Resolving]
